FAERS Safety Report 8480241-7 (Version None)
Quarter: 2012Q2

REPORT INFORMATION
  Report Type: 
  Country: None (occurrence: None)
  Receive Date: 20120629
  Receipt Date: 20120618
  Transmission Date: 20120825
  Serious: No
  Sender: FDA-Public Use
  Company Number: US-ASTRAZENECA-2012SE40945

PATIENT
  Sex: Male

DRUGS (2)
  1. SYMBICORT [Suspect]
     Dosage: UNKONOWN
     Route: 055
  2. ADVAIR DISKUS 100/50 [Concomitant]

REACTIONS (1)
  - INCREASED UPPER AIRWAY SECRETION [None]
